FAERS Safety Report 8806569 (Version 1)
Quarter: 2012Q4

REPORT INFORMATION
  Report Type: 
  Country: JP (occurrence: JP)
  Receive Date: 20120925
  Receipt Date: 20120925
  Transmission Date: 20130627
  Serious: Yes (Hospitalization, Other)
  Sender: FDA-Public Use
  Company Number: JP-009507513-2012SP033378

PATIENT
  Age: 24 Year
  Sex: Male

DRUGS (6)
  1. REFLEX [Suspect]
     Dosage: 15 mg18 tablets, ONCE
     Route: 048
     Dates: start: 20120614, end: 20120614
  2. ROHYPNOL [Suspect]
     Dosage: 1 mg x 18 tablets, once
     Route: 048
     Dates: start: 20120614, end: 20120614
  3. BROTIZOLAM [Suspect]
     Dosage: 0.25 mg x 6 tablet, ONCE
     Route: 048
     Dates: start: 20120614, end: 20120614
  4. LEVOMEPROMAZINE HYDROCHLORIDE [Suspect]
     Dosage: 25 mg x 12 tablets, ONCE
     Route: 048
     Dates: start: 20120614, end: 20120614
  5. ZYPREXA [Suspect]
     Dosage: 10 mg x 6 tablets, ONCE
     Route: 048
     Dates: start: 20120614, end: 20120614
  6. AKINETON [Suspect]
     Dosage: 1 mg x 12 tablets, Once
     Route: 048
     Dates: start: 20120614, end: 20120614

REACTIONS (2)
  - Somnolence [Recovered/Resolved]
  - Intentional overdose [Unknown]
